FAERS Safety Report 7214897-3 (Version None)
Quarter: 2011Q1

REPORT INFORMATION
  Report Type: 
  Country: None (occurrence: None)
  Receive Date: 20110107
  Receipt Date: 20100428
  Transmission Date: 20110831
  Serious: No
  Sender: FDA-Public Use
  Company Number: A0857077A

PATIENT
  Sex: Female

DRUGS (4)
  1. FLONASE [Concomitant]
  2. CELEBREX [Concomitant]
  3. ALLEGRA [Concomitant]
  4. LOVAZA [Suspect]
     Indication: PROPHYLAXIS
     Dosage: 2CAPL PER DAY
     Route: 048
     Dates: start: 20090401

REACTIONS (2)
  - ERUCTATION [None]
  - STEATORRHOEA [None]
